FAERS Safety Report 8835663 (Version 1)
Quarter: 2012Q4

REPORT INFORMATION
  Report Type: 
  Country: US (occurrence: US)
  Receive Date: 20121011
  Receipt Date: 20121011
  Transmission Date: 20130627
  Serious: Yes (Disabling, Other)
  Sender: FDA-Public Use
  Company Number: US-ARROW-2012-17028

PATIENT
  Age: 59 Year
  Sex: Female
  Weight: 57 kg

DRUGS (3)
  1. CIPROFLOXACIN HYDROCHLORIDE [Suspect]
     Indication: URINARY TRACT INFECTION
     Dosage: one tablet two times daily
     Route: 048
     Dates: start: 20120912, end: 20120922
  2. WARFARIN [Suspect]
     Indication: PULMONARY EMBOLISM
     Dosage: 10 mg, daily, sun - thursday
     Route: 048
     Dates: start: 20110826
  3. WARFARIN [Suspect]
     Dosage: 5 mg, daily, fri - sat
     Route: 048
     Dates: start: 20110826

REACTIONS (10)
  - Immobile [Recovering/Resolving]
  - Tendon rupture [Unknown]
  - Contusion [Recovering/Resolving]
  - Erythema [Recovering/Resolving]
  - Feeling hot [Recovering/Resolving]
  - Inflammation [Recovering/Resolving]
  - Swelling [Recovering/Resolving]
  - Tendon pain [Recovering/Resolving]
  - Drug interaction [Not Recovered/Not Resolved]
  - Arthralgia [Recovering/Resolving]
